FAERS Safety Report 7972298-4 (Version None)
Quarter: 2011Q4

REPORT INFORMATION
  Report Type: 
  Country: None (occurrence: None)
  Receive Date: 20111213
  Receipt Date: 20111207
  Transmission Date: 20120403
  Serious: No
  Sender: FDA-Public Use
  Company Number: US-BIOGENIDEC-2011BI018926

PATIENT
  Sex: Female

DRUGS (1)
  1. TYSABRI [Suspect]
     Indication: MULTIPLE SCLEROSIS
     Route: 042
     Dates: start: 20110413

REACTIONS (7)
  - STRESS [None]
  - AMNESIA [None]
  - BALANCE DISORDER [None]
  - HEADACHE [None]
  - COGNITIVE DISORDER [None]
  - DIPLOPIA [None]
  - MEMORY IMPAIRMENT [None]
